FAERS Safety Report 4463890-2 (Version None)
Quarter: 2004Q3

REPORT INFORMATION
  Report Type: 
  Country: None (occurrence: None)
  Receive Date: 20040929
  Receipt Date: 20040916
  Transmission Date: 20050211
  Serious: Yes (Death, Other)
  Sender: FDA-Public Use
  Company Number: 2004067515

PATIENT
  Age: 57 Year
  Sex: Male

DRUGS (3)
  1. NORVASC [Suspect]
     Indication: HYPERTENSION
     Dosage: (10 MG) , ORAL
     Route: 048
     Dates: start: 20040630, end: 20040702
  2. PIP/TAZO (PIPERACILLIN SODIUM, TAZOBACTAM SODUM) [Concomitant]
  3. IMIPENEM [Concomitant]

REACTIONS (4)
  - ALANINE AMINOTRANSFERASE INCREASED [None]
  - ASPARTATE AMINOTRANSFERASE INCREASED [None]
  - JAUNDICE [None]
  - SEPSIS [None]
